FAERS Safety Report 8930648 (Version 1)
Quarter: 2012Q4

REPORT INFORMATION
  Report Type: 
  Country: US (occurrence: US)
  Receive Date: 20121128
  Receipt Date: 20121128
  Transmission Date: 20130627
  Serious: No
  Sender: FDA-Public Use
  Company Number: AX-ASTRAZENECA-2012SE84373

PATIENT
  Age: 157 Day
  Sex: Female
  Weight: 44.9 kg

DRUGS (10)
  1. CRESTOR [Suspect]
     Indication: BLOOD CHOLESTEROL INCREASED
     Route: 048
     Dates: start: 20121010
  2. LISINOPRIL [Suspect]
     Indication: HYPERTENSION
     Dosage: GENERIC
     Route: 048
  3. ATENOLOL [Suspect]
     Indication: HYPERTENSION
     Dosage: GENERIC
     Route: 054
  4. PREDNISONE [Concomitant]
     Indication: CROHN^S DISEASE
  5. ASACOL [Concomitant]
     Indication: CROHN^S DISEASE
  6. DEXILANT DR [Concomitant]
     Indication: CROHN^S DISEASE
  7. CLONIDINE XEL [Concomitant]
     Indication: HYPERTENSION
  8. HYDROCHLOROTHIAZIDE [Concomitant]
     Indication: HYPERTENSION
  9. AMLODIPINE [Concomitant]
     Indication: HYPERTENSION
  10. ZANAX [Concomitant]
     Indication: ANXIETY

REACTIONS (3)
  - Abdominal pain lower [Unknown]
  - Abdominal pain upper [Unknown]
  - Off label use [Unknown]
